FAERS Safety Report 4506165-5 (Version None)
Quarter: 2004Q4

REPORT INFORMATION
  Report Type: 
  Country: None (occurrence: None)
  Receive Date: 20041119
  Receipt Date: 20041004
  Transmission Date: 20050328
  Serious: Yes (Hospitalization)
  Sender: FDA-Public Use
  Company Number: HQWYE538505OCT04

PATIENT
  Sex: Female

DRUGS (7)
  1. ENBREL [Suspect]
     Indication: RHEUMATOID ARTHRITIS
     Route: 058
     Dates: start: 20040522, end: 20040922
  2. ALGELDRATE [Concomitant]
     Route: 048
     Dates: start: 20040814, end: 20040925
  3. CELEBREX [Concomitant]
     Route: 048
     Dates: start: 20040731, end: 20040925
  4. FOLIC ACID [Concomitant]
     Route: 048
     Dates: start: 20031201, end: 20040925
  5. METHOTREXATE [Concomitant]
     Route: 048
     Dates: start: 20030919, end: 20040925
  6. PLAQUENIL [Concomitant]
     Route: 048
     Dates: start: 20030919, end: 20030925
  7. SULFASALAZINE [Concomitant]
     Route: 048
     Dates: start: 20030909, end: 20040925

REACTIONS (2)
  - PLEURAL EFFUSION [None]
  - TUBERCULOSIS [None]
